FAERS Safety Report 25779426 (Version 1)
Quarter: 2025Q3

REPORT INFORMATION
  Report Type: Spontaneous
  Country: IN (occurrence: IN)
  Receive Date: 20250909
  Receipt Date: 20250909
  Transmission Date: 20251021
  Serious: Yes (Hospitalization)
  Sender: Alora Pharma
  Company Number: IN-SUNNY-2025ALO02473

PATIENT
  Age: 61 Year
  Sex: Male

DRUGS (2)
  1. NITROFURANTOIN [Suspect]
     Active Substance: NITROFURANTOIN
     Indication: Pyrexia
     Dosage: 100 MG, 2X/DAY
  2. NITROFURANTOIN [Suspect]
     Active Substance: NITROFURANTOIN
     Indication: Dysuria

REACTIONS (3)
  - Cutaneous vasculitis [Recovering/Resolving]
  - Acute myocardial infarction [Recovering/Resolving]
  - Cerebral infarction [Recovering/Resolving]
